FAERS Safety Report 11148178 (Version 1)
Quarter: 2015Q2

REPORT INFORMATION
  Report Type: Spontaneous
  Country: BR (occurrence: BR)
  Receive Date: 20150529
  Receipt Date: 20150529
  Transmission Date: 20150821
  Serious: Yes (Other)
  Sender: FDA-Public Use
  Company Number: BR-009507513-1505BRA010223

PATIENT
  Age: 29 Year
  Sex: Female
  Weight: 75 kg

DRUGS (1)
  1. NUVARING [Suspect]
     Active Substance: ETHINYL ESTRADIOL\ETONOGESTREL
     Indication: CONTRACEPTION
     Dosage: 21 DAYS IN SITU/ONE-WEEK RING-FREE
     Route: 067
     Dates: start: 1996, end: 200501

REACTIONS (4)
  - Breast feeding [Unknown]
  - Caesarean section [Unknown]
  - Maternal exposure before pregnancy [Recovered/Resolved]
  - Umbilical cord around neck [Unknown]

NARRATIVE: CASE EVENT DATE: 20060610
